FAERS Safety Report 17068443 (Version 1)
Quarter: 2019Q4

REPORT INFORMATION
  Report Type: Spontaneous
  Country: US (occurrence: US)
  Receive Date: 20191123
  Receipt Date: 20191123
  Transmission Date: 20200122
  Serious: Yes (Hospitalization, Other)
  Sender: FDA-Public Use
  Company Number: US-BION-008397

PATIENT
  Age: 23 Year
  Sex: Female

DRUGS (3)
  1. SERTRALINE [Concomitant]
     Active Substance: SERTRALINE HYDROCHLORIDE
  2. IMODIUM [Suspect]
     Active Substance: LOPERAMIDE HYDROCHLORIDE
  3. DICYCLOVERINE [Concomitant]
     Active Substance: DICYCLOMINE HYDROCHLORIDE
     Dosage: 10 MG TWICE DAILY AS NEEDED

REACTIONS (3)
  - Tachycardia [Recovered/Resolved]
  - Drug abuse [Unknown]
  - Cardiomyopathy [Recovered/Resolved]
